FAERS Safety Report 23974707 (Version 1)
Quarter: 2024Q2

REPORT INFORMATION
  Report Type: Spontaneous
  Country: US (occurrence: US)
  Receive Date: 20240614
  Receipt Date: 20240614
  Transmission Date: 20240715
  Serious: No
  Sender: FDA-Public Use
  Company Number: US-GSKCCFUS-Case-02029257_AE-112551

PATIENT
  Sex: Female

DRUGS (1)
  1. TRELEGY ELLIPTA [Suspect]
     Active Substance: FLUTICASONE FUROATE\UMECLIDINIUM BROMIDE\VILANTEROL TRIFENATATE
     Indication: Product used for unknown indication
     Dosage: 1 PUFF(S), 100/62.5/25
     Route: 055

REACTIONS (4)
  - Dyspnoea [Unknown]
  - Dysphonia [Unknown]
  - Food poisoning [Unknown]
  - Product complaint [Unknown]

NARRATIVE: CASE EVENT DATE: 20231201
